FAERS Safety Report 8520220-4 (Version None)
Quarter: 2012Q3

REPORT INFORMATION
  Report Type: 
  Country: None (occurrence: None)
  Receive Date: 20120709
  Receipt Date: 20110504
  Transmission Date: 20120928
  Serious: Yes (Congenital Anomaly)
  Sender: FDA-Public Use
  Company Number: 911189

PATIENT

DRUGS (1)
  1. METHOTREXATE [Suspect]
     Dosage: TRANSPLACENTAL
     Route: 064

REACTIONS (3)
  - MATERNAL DRUGS AFFECTING FOETUS [None]
  - FALLOT'S TETRALOGY [None]
  - PULMONARY ARTERY ATRESIA [None]
